FAERS Safety Report 9680811 (Version 1)
Quarter: 2013Q4

REPORT INFORMATION
  Report Type: Spontaneous
  Country: IT (occurrence: IT)
  Receive Date: 20131111
  Receipt Date: 20131111
  Transmission Date: 20140711
  Serious: Yes (Disabling)
  Sender: FDA-Public Use
  Company Number: PHHY2013IT127475

PATIENT
  Age: 75 Year
  Sex: Male

DRUGS (2)
  1. ZOMETA [Suspect]
     Indication: METASTASES TO BONE
     Dosage: 4 MG, MONTHLY
     Route: 042
     Dates: start: 20120201, end: 20120601
  2. SUTENT [Concomitant]
     Indication: RENAL CANCER
     Dosage: 37.5 MG, UNK
     Route: 048
     Dates: start: 20110101, end: 20131001

REACTIONS (1)
  - Osteonecrosis of jaw [Not Recovered/Not Resolved]
